FAERS Safety Report 7533966-1 (Version None)
Quarter: 2011Q2

REPORT INFORMATION
  Report Type: 
  Country: None (occurrence: None)
  Receive Date: 20110608
  Receipt Date: 20060705
  Transmission Date: 20111010
  Serious: Yes (Death, Hospitalization, Other)
  Sender: FDA-Public Use
  Company Number: PHFR2006GB00653

PATIENT
  Sex: Male

DRUGS (9)
  1. CLOZAPINE [Suspect]
     Indication: SCHIZOPHRENIA
     Route: 048
     Dates: start: 19960729
  2. CITALOPRAM HYDROBROMIDE [Concomitant]
     Dosage: 20MG/DAY
     Route: 048
  3. PREDNISOLONE [Concomitant]
     Dosage: 7.5 MG
     Route: 048
  4. CLOZAPINE [Suspect]
     Dosage: 200MG/DAY
     Route: 048
  5. CLOZAPINE [Suspect]
     Dosage: 50 MG/DAY
     Route: 048
  6. LANSOPRAZOLE [Concomitant]
     Dosage: 30MG/DAY
     Route: 048
  7. GLICLAZIDE [Concomitant]
     Dosage: 40MG/DAY
     Route: 048
  8. CLOZAPINE [Suspect]
     Dosage: 300 MG/DAY
     Route: 048
  9. CLOZAPINE [Suspect]
     Dosage: 250MG/DAY
     Dates: end: 20060303

REACTIONS (9)
  - SOMNOLENCE [None]
  - ANAEMIA [None]
  - MEDICATION ERROR [None]
  - CHEST X-RAY ABNORMAL [None]
  - BRONCHIAL CARCINOMA [None]
  - PANCREATIC PSEUDOCYST [None]
  - WEIGHT DECREASED [None]
  - SARCOIDOSIS [None]
  - DYSPNOEA [None]
